FAERS Safety Report 5511658-8 (Version None)
Quarter: 2007Q4

REPORT INFORMATION
  Report Type: 
  Country: None (occurrence: None)
  Receive Date: 20071109
  Receipt Date: 20071026
  Transmission Date: 20080405
  Serious: Yes (Disabling)
  Sender: FDA-Public Use
  Company Number: GB-RANBAXY-2007RR-11121

PATIENT

DRUGS (3)
  1. SERTRALINE [Suspect]
     Indication: MEMORY IMPAIRMENT
     Dosage: 50 MG, QD
     Route: 048
     Dates: start: 20060113, end: 20060114
  2. SERTRALINE [Suspect]
     Indication: SLEEP DISORDER
  3. CODEINE PHOSPHATE TABLETS BP 15MG [Concomitant]
     Indication: PAIN
     Route: 048

REACTIONS (14)
  - ABDOMINAL DISTENSION [None]
  - ARTHRALGIA [None]
  - CHEST PAIN [None]
  - DERMATITIS ALLERGIC [None]
  - DIARRHOEA [None]
  - DYSPEPSIA [None]
  - DYSPNOEA [None]
  - GASTROINTESTINAL DISORDER [None]
  - HOT FLUSH [None]
  - HYPOAESTHESIA [None]
  - MYALGIA [None]
  - NAUSEA [None]
  - ODYNOPHAGIA [None]
  - PARAESTHESIA [None]
